FAERS Safety Report 25045334 (Version 1)
Quarter: 2025Q1

REPORT INFORMATION
  Report Type: Spontaneous
  Country: US (occurrence: US)
  Receive Date: 20250306
  Receipt Date: 20250306
  Transmission Date: 20250409
  Serious: No
  Sender: ELI LILLY AND COMPANY
  Company Number: US-ELI_LILLY_AND_COMPANY-US202503001722

PATIENT
  Age: 49 Year

DRUGS (1)
  1. ZEPBOUND [Suspect]
     Active Substance: TIRZEPATIDE
     Indication: Product used for unknown indication
     Route: 065
     Dates: start: 20250228

REACTIONS (7)
  - Pain [Recovering/Resolving]
  - Lymphadenopathy [Not Recovered/Not Resolved]
  - Autoimmune disorder [Unknown]
  - Feeling abnormal [Not Recovered/Not Resolved]
  - Influenza like illness [Recovering/Resolving]
  - Dizziness [Not Recovered/Not Resolved]
  - Fatigue [Not Recovered/Not Resolved]

NARRATIVE: CASE EVENT DATE: 20250228
